FAERS Safety Report 11951620 (Version 2)
Quarter: 2016Q1

REPORT INFORMATION
  Report Type: Spontaneous
  Country: GB (occurrence: GB)
  Receive Date: 20160126
  Receipt Date: 20160219
  Transmission Date: 20160526
  Serious: Yes (Hospitalization, Other)
  Sender: FDA-Public Use
  Company Number: GB-PFIZER INC-2016029178

PATIENT
  Age: 66 Year
  Sex: Male

DRUGS (1)
  1. SUNITINIB MALATE. [Suspect]
     Active Substance: SUNITINIB MALATE
     Indication: PANCREATIC NEUROENDOCRINE TUMOUR
     Dosage: UNK
     Dates: start: 201107

REACTIONS (6)
  - Disease progression [Unknown]
  - Ileus paralytic [Unknown]
  - Pancreatic neuroendocrine tumour [Unknown]
  - Abdominal pain [Unknown]
  - Atrial fibrillation [Unknown]
  - Pleural effusion [Unknown]

NARRATIVE: CASE EVENT DATE: 201303
